FAERS Safety Report 23981186 (Version 1)
Quarter: 2024Q2

REPORT INFORMATION
  Report Type: Spontaneous
  Country: US (occurrence: None)
  Receive Date: 20240614
  Receipt Date: 20240614
  Transmission Date: 20240716
  Serious: No
  Sender: FDA-Public Use
  Company Number: None

PATIENT
  Sex: 0

DRUGS (2)
  1. OCREVUS [Suspect]
     Active Substance: OCRELIZUMAB
  2. METHYLPREDNISOLONE [Suspect]
     Active Substance: METHYLPREDNISOLONE

REACTIONS (3)
  - Infusion related reaction [None]
  - Therapy change [None]
  - Fatigue [None]
